FAERS Safety Report 25862698 (Version 2)
Quarter: 2025Q4

REPORT INFORMATION
  Report Type: Report from Study
  Country: GB (occurrence: GB)
  Receive Date: 20250930
  Receipt Date: 20251211
  Transmission Date: 20260117
  Serious: Yes (Other)
  Sender: TAKEDA
  Company Number: GB-TAKEDA-2025TUS064174

PATIENT
  Age: 79 Year
  Sex: Female

DRUGS (2)
  1. VEDOLIZUMAB [Suspect]
     Active Substance: VEDOLIZUMAB
     Indication: Colitis ulcerative
     Dosage: 108 MILLIGRAM, Q2WEEKS
     Dates: start: 202506
  2. VEDOLIZUMAB [Suspect]
     Active Substance: VEDOLIZUMAB
     Dosage: 108 MILLIGRAM, Q2WEEKS
     Dates: start: 20250702

REACTIONS (8)
  - Lower respiratory tract infection [Unknown]
  - Injection site extravasation [Unknown]
  - Product administration error [Unknown]
  - Device use error [Unknown]
  - Product storage error [Unknown]
  - Injection site pain [Unknown]
  - Arthritis [Unknown]
  - Musculoskeletal chest pain [Unknown]
